FAERS Safety Report 19951468 (Version 7)
Quarter: 2024Q3

REPORT INFORMATION
  Report Type: Spontaneous
  Country: DE (occurrence: DE)
  Receive Date: 20211014
  Receipt Date: 20240927
  Transmission Date: 20241017
  Serious: Yes (Hospitalization, Other)
  Sender: AUROBINDO
  Company Number: DE-ROCHE-2091662

PATIENT
  Age: 52 Year
  Sex: Male
  Weight: 90 kg

DRUGS (40)
  1. OXYCODONE [Suspect]
     Active Substance: OXYCODONE
     Indication: Product used for unknown indication
     Dosage: 10 MILLIGRAM (NEXT DOSE: 6 MG)
     Route: 065
  2. CORTISONE [Suspect]
     Active Substance: CORTISONE
     Indication: Premedication
     Dosage: 100 MILLIGRAM
     Route: 042
     Dates: start: 20190311, end: 20190311
  3. CORTISONE [Suspect]
     Active Substance: CORTISONE
     Dosage: 100 MILLIGRAM
     Route: 042
     Dates: start: 20190311, end: 20190311
  4. CORTISONE [Suspect]
     Active Substance: CORTISONE
     Dosage: 500 MILLIGRAM (4X 500MG)
     Route: 042
  5. COVID-19 VACCINE NOS [Suspect]
     Active Substance: COVID-19 VACCINE
     Indication: COVID-19 immunisation
     Dosage: FIRST DOSE
     Route: 065
  6. COVID-19 VACCINE NOS [Suspect]
     Active Substance: COVID-19 VACCINE
     Dosage: SECOND DOSE
     Route: 065
     Dates: start: 20210720
  7. DOMINAL (PROTHIPENDYL HYDROCHLORIDE) [Suspect]
     Active Substance: PROTHIPENDYL HYDROCHLORIDE
     Indication: Product used for unknown indication
     Dosage: 80 MILLIGRAM
     Route: 065
  8. OCREVUS [Suspect]
     Active Substance: OCRELIZUMAB
     Indication: Relapsing-remitting multiple sclerosis
     Dosage: UNK
     Route: 065
  9. OCREVUS [Suspect]
     Active Substance: OCRELIZUMAB
     Dosage: UNK
     Route: 042
     Dates: start: 20180228
  10. OCREVUS [Suspect]
     Active Substance: OCRELIZUMAB
     Dosage: 300 MILLIGRAM
     Route: 042
     Dates: start: 20180305, end: 20180305
  11. OCREVUS [Suspect]
     Active Substance: OCRELIZUMAB
     Dosage: 300 MILLIGRAM
     Route: 042
     Dates: start: 20180319, end: 20180319
  12. OCREVUS [Suspect]
     Active Substance: OCRELIZUMAB
     Dosage: 600 MILLIGRAM 6 MONTH (11/SEP/2018 AND 02/SEP/2019, RECEIVED SAME SUBSEQUENT DOSE OF OCRELIZUMAB)
     Route: 042
     Dates: start: 20180821, end: 20190311
  13. OCREVUS [Suspect]
     Active Substance: OCRELIZUMAB
     Dosage: 600 MILLIGRAM  6 MONTH
     Route: 042
     Dates: start: 20190902
  14. OCREVUS [Suspect]
     Active Substance: OCRELIZUMAB
     Dosage: 600 MILLIGRAM 6 MONTH
     Route: 042
     Dates: start: 20200306
  15. OCREVUS [Suspect]
     Active Substance: OCRELIZUMAB
     Dosage: 600 MILLIGRAM 178 DAY
     Route: 042
     Dates: start: 20210305
  16. OCREVUS [Suspect]
     Active Substance: OCRELIZUMAB
     Dosage: 600 MILLIGRAM 186 DAY
     Route: 042
     Dates: start: 20210907
  17. AMLODIPINE BESYLATE [Concomitant]
     Active Substance: AMLODIPINE BESYLATE
     Indication: Product used for unknown indication
     Dosage: 5 MILLIGRAM, ONCE A DAY (1-0-0)
     Route: 065
  18. ACETYLCYSTEINE [Concomitant]
     Active Substance: ACETYLCYSTEINE
     Indication: Product used for unknown indication
     Dosage: UNK
     Route: 065
  19. CANDESARTAN [Concomitant]
     Active Substance: CANDESARTAN
     Indication: Pain
     Dosage: 16 MILLIGRAM, TWO TIMES A DAY  (1-1-0)
     Route: 065
  20. CANDESARTAN [Concomitant]
     Active Substance: CANDESARTAN
     Dosage: 16 MILLIGRAM
     Route: 065
  21. CANDESARTAN [Concomitant]
     Active Substance: CANDESARTAN
     Dosage: 16 MILLIGRAM, TWO TIMES A DAY (14-16 MG)
     Route: 065
     Dates: start: 20180227
  22. DULOXETINE [Concomitant]
     Active Substance: DULOXETINE
     Indication: Depression
     Dosage: 30 MILLIGRAM, ONCE A DAY
     Route: 048
  23. DULOXETINE [Concomitant]
     Active Substance: DULOXETINE
     Dosage: 60 MILLIGRAM, ONCE A DAY
     Route: 065
  24. DULOXETINE [Concomitant]
     Active Substance: DULOXETINE
     Dosage: 30 MILLIGRAM, ONCE A DAY
     Route: 048
  25. DULOXETINE [Concomitant]
     Active Substance: DULOXETINE
     Dosage: 60 MILLIGRAM, ONCE A DAY
     Route: 048
  26. DIMETHINDENE [Concomitant]
     Active Substance: DIMETHINDENE
     Indication: Product used for unknown indication
     Dosage: 5 MILLIGRAM
     Route: 042
  27. DIMETHINDENE [Concomitant]
     Active Substance: DIMETHINDENE
     Dosage: UNK
     Route: 042
     Dates: start: 20190311, end: 20190311
  28. HERBALS [Concomitant]
     Active Substance: HERBALS
     Indication: Product used for unknown indication
     Dosage: UNK
     Route: 065
  29. IBUPROFEN [Concomitant]
     Active Substance: IBUPROFEN
     Indication: Migraine
     Dosage: 800 GRAM
     Route: 048
     Dates: start: 2013
  30. MIRTAZAPINE [Concomitant]
     Active Substance: MIRTAZAPINE
     Indication: Product used for unknown indication
     Dosage: 7.5 MILLIGRAM (IN THE EVENING)
     Route: 065
  31. POLYETHYLENE GLYCOLS [Concomitant]
     Active Substance: POLYETHYLENE GLYCOLS
     Indication: Product used for unknown indication
     Dosage: UNK, AS NEEDED
     Route: 065
  32. NAPROXEN [Concomitant]
     Active Substance: NAPROXEN
     Indication: Product used for unknown indication
     Dosage: UNK
     Route: 065
  33. ACETAMINOPHEN [Concomitant]
     Active Substance: ACETAMINOPHEN
     Indication: Product used for unknown indication
     Dosage: 800 MILLIGRAM
     Route: 065
  34. PREGABALIN [Concomitant]
     Active Substance: PREGABALIN
     Indication: Product used for unknown indication
     Dosage: 50 MILLIGRAM, 1-0-1
     Route: 065
  35. NALOXONE HYDROCHLORIDE\TILIDINE HYDROCHLORIDE [Concomitant]
     Active Substance: NALOXONE HYDROCHLORIDE\TILIDINE HYDROCHLORIDE
     Indication: Product used for unknown indication
     Dosage: 50 MG/4 MG
     Route: 065
  36. TRIMIPRAMINE [Concomitant]
     Active Substance: TRIMIPRAMINE
     Indication: Product used for unknown indication
     Dosage: DROPS AT NIGHT
     Route: 065
  37. ZOPICLONE [Concomitant]
     Active Substance: ZOPICLONE
     Indication: Pain
     Dosage: 7.5 MILLIGRAM, ONCE A DAY
     Route: 048
     Dates: start: 20100105
  38. ZOPICLONE [Concomitant]
     Active Substance: ZOPICLONE
     Dosage: 7.5 MILLIGRAM
     Route: 048
     Dates: start: 20180821
  39. QUETIAPINE [Concomitant]
     Active Substance: QUETIAPINE
     Indication: Product used for unknown indication
     Dosage: 25 MILLIGRAM(1/2 TABLET AS NEEDED AT NIGHT )
     Route: 065
  40. NABIXIMOLS [Concomitant]
     Active Substance: NABIXIMOLS
     Indication: Product used for unknown indication
     Dosage: UNK
     Route: 065

REACTIONS (40)
  - Loss of consciousness [Recovered/Resolved]
  - Diabetes mellitus [Not Recovered/Not Resolved]
  - Multiple sclerosis [Unknown]
  - Therapeutic product effect decreased [Unknown]
  - Hypersensitivity [Unknown]
  - Cardiovascular insufficiency [Recovered/Resolved]
  - Influenza like illness [Recovered/Resolved]
  - Vaccination failure [Not Recovered/Not Resolved]
  - Migraine [Not Recovered/Not Resolved]
  - Body temperature increased [Not Recovered/Not Resolved]
  - Depression [Unknown]
  - Pain [Unknown]
  - Anxiety [Unknown]
  - Erythema [Recovering/Resolving]
  - Neuralgia [Recovering/Resolving]
  - Arthralgia [Recovering/Resolving]
  - Nervousness [Recovering/Resolving]
  - Sensory disturbance [Recovering/Resolving]
  - Fatigue [Recovered/Resolved]
  - Paraesthesia [Recovered/Resolved]
  - White blood cell count increased [Recovered/Resolved]
  - Dizziness [Recovered/Resolved]
  - C-reactive protein increased [Recovered/Resolved]
  - Back pain [Recovered/Resolved]
  - Blood immunoglobulin G decreased [Recovered/Resolved]
  - Influenza [Recovered/Resolved]
  - Vomiting [Recovered/Resolved]
  - Infection [Recovered/Resolved]
  - Myalgia [Recovered/Resolved]
  - Nasopharyngitis [Recovered/Resolved]
  - Asthenia [Recovered/Resolved]
  - Hypotension [Recovered/Resolved]
  - Nausea [Recovered/Resolved]
  - Intraocular pressure test [Recovered/Resolved]
  - Flushing [Recovered/Resolved]
  - Headache [Recovered/Resolved]
  - Pyrexia [Recovered/Resolved]
  - Abnormal behaviour [Recovered/Resolved]
  - Coronavirus infection [Recovered/Resolved]
  - Inappropriate schedule of product administration [Unknown]

NARRATIVE: CASE EVENT DATE: 20180305
